FAERS Safety Report 18888370 (Version 1)
Quarter: 2021Q1

REPORT INFORMATION
  Report Type: Spontaneous
  Country: FR (occurrence: FR)
  Receive Date: 20210212
  Receipt Date: 20210212
  Transmission Date: 20210420
  Serious: Yes (Disabling)
  Sender: FDA-Public Use
  Company Number: FR-FERRINGPH-2021FE00159

PATIENT
  Age: 9 Decade
  Sex: Male

DRUGS (4)
  1. CRESTOR [Concomitant]
     Active Substance: ROSUVASTATIN CALCIUM
     Indication: CORONARY ARTERY BYPASS
     Dosage: 10 MG
     Dates: start: 2000
  2. RESITUNE [Concomitant]
     Active Substance: ASPIRIN
     Indication: CORONARY ARTERY BYPASS
     Dosage: UNK
     Dates: start: 2000
  3. FIRMAGON [Suspect]
     Active Substance: DEGARELIX ACETATE
     Indication: PROSTATE CANCER
     Dosage: 80 MG, ONCE/SINGLE
     Route: 065
     Dates: start: 201905, end: 201905
  4. BISOCE [Concomitant]
     Active Substance: BISOPROLOL
     Indication: CORONARY ARTERY BYPASS
     Dosage: UNK
     Dates: start: 2000

REACTIONS (4)
  - Injection site pain [Recovered/Resolved]
  - Mobility decreased [Not Recovered/Not Resolved]
  - Fatigue [Not Recovered/Not Resolved]
  - Incorrect dose administered [Recovered/Resolved]

NARRATIVE: CASE EVENT DATE: 201905
